FAERS Safety Report 12492368 (Version 1)
Quarter: 2016Q2

REPORT INFORMATION
  Report Type: Spontaneous
  Country: GB (occurrence: GB)
  Receive Date: 20160623
  Receipt Date: 20160623
  Transmission Date: 20160815
  Serious: Yes (Other)
  Sender: FDA-Public Use
  Company Number: GB-TEVA-668852ACC

PATIENT
  Age: 57 Year
  Sex: Female
  Weight: 62 kg

DRUGS (4)
  1. BIOXTRA [Concomitant]
  2. LEVOTHYROXINE. [Concomitant]
     Active Substance: LEVOTHYROXINE
  3. CALCIUM AND VITAMIN D [Concomitant]
     Active Substance: CALCIUM\VITAMIN D
  4. LANSOPRAZOLE. [Suspect]
     Active Substance: LANSOPRAZOLE
     Indication: GASTROOESOPHAGEAL REFLUX DISEASE
     Route: 048
     Dates: start: 20160305, end: 20160422

REACTIONS (9)
  - Nervous system disorder [Unknown]
  - Tardive dyskinesia [Not Recovered/Not Resolved]
  - Drooling [Unknown]
  - Drug withdrawal syndrome [Unknown]
  - Muscle twitching [Unknown]
  - Oral pain [Unknown]
  - Dyskinesia [Unknown]
  - Dysphagia [Unknown]
  - Speech disorder [Unknown]

NARRATIVE: CASE EVENT DATE: 20160428
